FAERS Safety Report 8582383-4 (Version None)
Quarter: 2012Q3

REPORT INFORMATION
  Report Type: 
  Country: None (occurrence: None)
  Receive Date: 20120809
  Receipt Date: 20120806
  Transmission Date: 20120928
  Serious: Yes (Hospitalization)
  Sender: FDA-Public Use
  Company Number: US-GLAXOSMITHKLINE-A0957829A

PATIENT
  Age: 47 Year
  Sex: Female

DRUGS (2)
  1. TRACLEER [Concomitant]
     Indication: PULMONARY HYPERTENSION
     Dosage: 125MG TWICE PER DAY
     Route: 048
  2. FLOLAN [Suspect]
     Indication: PULMONARY ARTERIAL HYPERTENSION
     Dosage: 29NGKM CONTINUOUS
     Route: 042
     Dates: start: 19990927

REACTIONS (6)
  - DIZZINESS [None]
  - FURUNCLE [None]
  - CYST [None]
  - HYPOTENSION [None]
  - GROIN PAIN [None]
  - CATHETER SITE DISCHARGE [None]
